FAERS Safety Report 7470875-0 (Version None)
Quarter: 2011Q2

REPORT INFORMATION
  Report Type: 
  Country: None (occurrence: None)
  Receive Date: 20110502
  Receipt Date: 20110415
  Transmission Date: 20111010
  Serious: Yes (Hospitalization)
  Sender: FDA-Public Use
  Company Number: DSA_45455_2011

PATIENT
  Age: 70 Year
  Sex: Female

DRUGS (12)
  1. LORAZEPAM [Concomitant]
  2. SINTROM [Concomitant]
  3. DIGOXIN [Suspect]
     Indication: PRODUCT USED FOR UNKNOWN INDICATION
     Dosage: 0.25 MG QD ORAL
     Route: 048
     Dates: start: 20070301
  4. FERROUS SULFATE TAB [Concomitant]
  5. REPAGLINIDE [Concomitant]
  6. METFORMIN HCL [Concomitant]
  7. FUROSEMIDE [Concomitant]
  8. OPTOVIT-E [Concomitant]
  9. SERETIDE [Concomitant]
  10. DILTIAZEM HYDROCHLORIDE [Suspect]
     Indication: PRODUCT USED FOR UNKNOWN INDICATION
     Dosage: 180 MG, BID, ORAL
     Route: 048
     Dates: start: 20070301, end: 20071226
  11. ATACAND [Concomitant]
  12. ESTOMIL [Concomitant]

REACTIONS (12)
  - FALL [None]
  - INTRADUCTAL PAPILLARY MUCINOUS NEOPLASM [None]
  - BUNDLE BRANCH BLOCK RIGHT [None]
  - RENAL FAILURE [None]
  - DIARRHOEA [None]
  - DIZZINESS [None]
  - SUPRAVENTRICULAR EXTRASYSTOLES [None]
  - TOXICITY TO VARIOUS AGENTS [None]
  - ATRIOVENTRICULAR BLOCK [None]
  - RENAL DISORDER [None]
  - DYSPNOEA [None]
  - DRUG INTERACTION [None]
